FAERS Safety Report 8905373 (Version 1)
Quarter: 2012Q4

REPORT INFORMATION
  Report Type: 
  Country: US (occurrence: US)
  Receive Date: 20121109
  Receipt Date: 20121109
  Transmission Date: 20130627
  Serious: No
  Sender: FDA-Public Use
  Company Number: US-PFIZER INC-2012280178

PATIENT
  Age: 68 Year
  Sex: Male
  Weight: 63.49 kg

DRUGS (1)
  1. ADVIL ALLERGY AND CONGESTION RELIEF [Suspect]
     Indication: ALLERGY
     Dosage: 4mg/ 200mg/10mg, once a day
     Route: 048
     Dates: start: 20121020, end: 20121108

REACTIONS (5)
  - Drug ineffective [Unknown]
  - Sinus headache [Unknown]
  - Nasal oedema [Unknown]
  - Nasal congestion [Unknown]
  - Sneezing [Unknown]
